FAERS Safety Report 8779635 (Version 1)
Quarter: 2012Q4

REPORT INFORMATION
  Report Type: 
  Country: CN (occurrence: CN)
  Receive Date: 20120911
  Receipt Date: 20120911
  Transmission Date: 20130627
  Serious: Yes (Other)
  Sender: FDA-Public Use
  Company Number: CN-PFIZER INC-2012219230

PATIENT
  Age: 46 Year
  Sex: Male

DRUGS (2)
  1. RAPAMUNE [Suspect]
     Indication: RENAL TRANSPLANT
     Dosage: UNK
     Dates: start: 2006
  2. CELLCEPT [Concomitant]
     Indication: RENAL TRANSPLANT

REACTIONS (2)
  - Ascites [Unknown]
  - Pleural effusion [Unknown]
